FAERS Safety Report 8435537-1 (Version None)
Quarter: 2012Q2

REPORT INFORMATION
  Report Type: 
  Country: None (occurrence: None)
  Receive Date: 20120614
  Receipt Date: 20120607
  Transmission Date: 20120825
  Serious: Yes (Hospitalization)
  Sender: FDA-Public Use
  Company Number: GR-PFIZER INC-2012136942

PATIENT
  Age: 30 Year
  Sex: Male

DRUGS (2)
  1. VIBRAMYCIN [Suspect]
     Indication: SINUSITIS
     Dosage: 100 MG, 1X/DAY
     Route: 048
     Dates: start: 20060101, end: 20060101
  2. MEDROL [Concomitant]
     Dosage: UNK
     Route: 048

REACTIONS (3)
  - ABDOMINAL DISTENSION [None]
  - ABDOMINAL PAIN [None]
  - CONSTIPATION [None]
